FAERS Safety Report 9018534 (Version 1)
Quarter: 2013Q1

REPORT INFORMATION
  Report Type: Spontaneous
  Country: US (occurrence: US)
  Receive Date: 20130118
  Receipt Date: 20130118
  Transmission Date: 20140127
  Serious: No
  Sender: FDA-Public Use
  Company Number: US-PFIZER INC-2013021330

PATIENT
  Age: 46 Year
  Sex: Female
  Weight: 58.96 kg

DRUGS (6)
  1. CHANTIX [Suspect]
     Indication: SMOKING CESSATION THERAPY
     Route: 048
  2. CHANTIX [Suspect]
     Dosage: 1 MG, 2X/DAY
     Route: 048
     Dates: start: 20130112, end: 20130114
  3. FLEXERIL [Concomitant]
     Dosage: UNK
  4. PROPRANOLOL [Concomitant]
     Dosage: 120 MG, 2X/DAY
  5. ADVIL [Concomitant]
     Dosage: UNK
  6. LYRICA [Concomitant]
     Dosage: 200 MG, 2X/DAY

REACTIONS (1)
  - Insomnia [Unknown]
